FAERS Safety Report 17900532 (Version 2)
Quarter: 2021Q2

REPORT INFORMATION
  Report Type: Spontaneous
  Country: US (occurrence: US)
  Receive Date: 20200616
  Receipt Date: 20210629
  Transmission Date: 20210717
  Serious: No
  Sender: FDA-Public Use
  Company Number: US-TEVA-2020-US-1466116

PATIENT
  Sex: Female

DRUGS (1)
  1. AUSTEDO [Suspect]
     Active Substance: DEUTETRABENAZINE
     Indication: TARDIVE DYSKINESIA
     Dosage: 6 MILLIGRAM DAILY; WEEKS 2 AND 3: USE OTHER STRENGTHS. WEEK 4: TAKE A 6 MG WITH A 9 MG TWICE A DAY (
     Route: 048
     Dates: start: 20200527

REACTIONS (1)
  - Dry mouth [Unknown]
